APPROVED DRUG PRODUCT: OXYCODONE HYDROCHLORIDE
Active Ingredient: OXYCODONE HYDROCHLORIDE
Strength: 100MG/5ML
Dosage Form/Route: SOLUTION;ORAL
Application: A202537 | Product #001
Applicant: VISTAPHARM LLC
Approved: Jul 30, 2012 | RLD: No | RS: No | Type: DISCN